FAERS Safety Report 6560922-2 (Version None)
Quarter: 2010Q1

REPORT INFORMATION
  Report Type: 
  Country: None (occurrence: None)
  Receive Date: 20100129
  Receipt Date: 20090925
  Transmission Date: 20100710
  Serious: No
  Sender: FDA-Public Use
  Company Number: US-ABBOTT-09P-163-0599394-00

PATIENT
  Sex: Female
  Weight: 89.892 kg

DRUGS (10)
  1. HUMIRA [Suspect]
     Indication: PSORIASIS
     Dosage: 2 THEN ONE WEEK ONE THEN 2 WEEKS
     Dates: start: 20090903
  2. COREG [Concomitant]
     Indication: CARDIAC FAILURE CONGESTIVE
  3. LISINOPRIL [Concomitant]
     Indication: HYPERTENSION
  4. ISORBID [Concomitant]
     Indication: HYPERTENSION
  5. ALLOPURINOL [Concomitant]
     Indication: GOUT
  6. LASIX [Concomitant]
     Indication: CARDIAC FAILURE CONGESTIVE
  7. ASPIRIN [Concomitant]
     Indication: CARDIOVASCULAR EVENT PROPHYLAXIS
  8. HUMALOG MIX 50/50 [Concomitant]
     Indication: DIABETES MELLITUS
  9. METFORMIN [Concomitant]
     Indication: DIABETES MELLITUS
  10. METHOTREXATE [Concomitant]
     Indication: PSORIASIS

REACTIONS (1)
  - DRUG DOSE OMISSION [None]
